FAERS Safety Report 15003128 (Version 1)
Quarter: 2018Q2

REPORT INFORMATION
  Report Type: Spontaneous
  Country: FR (occurrence: FR)
  Receive Date: 20180612
  Receipt Date: 20180612
  Transmission Date: 20180711
  Serious: Yes (Hospitalization)
  Sender: FDA-Public Use
  Company Number: FR-TEVA-2018-FR-905857

PATIENT
  Age: 81 Year
  Sex: Male

DRUGS (5)
  1. EUCREAS 50 MG/1000 MG, COMPRIM? PELLICUL? [Suspect]
     Active Substance: METFORMIN HYDROCHLORIDE\VILDAGLIPTIN
     Indication: TYPE 2 DIABETES MELLITUS
     Dosage: 50 MG/1000 MG
     Route: 048
     Dates: start: 20091210, end: 20180310
  2. GLIMEPIRIDE. [Suspect]
     Active Substance: GLIMEPIRIDE
     Indication: TYPE 2 DIABETES MELLITUS
     Dosage: 3 MILLIGRAM DAILY;
     Route: 048
     Dates: start: 1999, end: 20180310
  3. KARDEGIC 300 MG, POUDRE POUR SOLUTION BUVABLE EN SACHET [Concomitant]
     Dosage: 300 MILLIGRAM DAILY;
     Route: 048
  4. JOSIR L.P. 0,4 MG, MICROGRANULES ? LIB?RATION PROLONG?E EN G?LULE [Concomitant]
     Dosage: .4 MILLIGRAM DAILY;
     Route: 048
  5. RAMIPRIL ALMUS 10 MG, COMPRIM? S?CABLE [Suspect]
     Active Substance: RAMIPRIL
     Indication: ISCHAEMIC CARDIOMYOPATHY
     Dosage: 10 MILLIGRAM DAILY; SCORED
     Route: 048
     Dates: start: 2006, end: 20180311

REACTIONS (1)
  - Pancreatitis acute [Recovered/Resolved]

NARRATIVE: CASE EVENT DATE: 20180312
